FAERS Safety Report 24843073 (Version 1)
Quarter: 2025Q1

REPORT INFORMATION
  Report Type: Report from Study
  Country: US (occurrence: US)
  Receive Date: 20250115
  Receipt Date: 20250115
  Transmission Date: 20250408
  Serious: No
  Sender: HRA PHARMA
  Company Number: US-ORG100014127-2024000217

PATIENT
  Age: 38 Year
  Sex: Male

DRUGS (16)
  1. LYSODREN [Suspect]
     Active Substance: MITOTANE
     Indication: Adrenocortical carcinoma
     Dosage: 2 TABLETS TWICE DAILY
     Route: 048
     Dates: start: 20231205
  2. LYSODREN [Suspect]
     Active Substance: MITOTANE
     Indication: Adrenocortical carcinoma
     Dosage: 3 TABLETS THREE TIMES DAILY
     Route: 048
  3. LYSODREN [Suspect]
     Active Substance: MITOTANE
     Indication: Adrenocortical carcinoma
     Dosage: 4 TABLETS THREE TIMES DAILY
     Route: 048
     Dates: start: 202406
  4. AMLODIPINE [Concomitant]
     Active Substance: AMLODIPINE BESYLATE
     Indication: Product used for unknown indication
  5. CELEXA TAB 10MG [Concomitant]
     Indication: Product used for unknown indication
  6. CISPLATIN INJ 200MG [Concomitant]
     Indication: Product used for unknown indication
  7. DIPHENHYDRAM POW HCL [Concomitant]
     Indication: Product used for unknown indication
  8. DOXORUBICIN INJ 10/5ML [Concomitant]
     Indication: Product used for unknown indication
  9. DULCOLAX SUP 10MG [Concomitant]
     Indication: Product used for unknown indication
  10. ETOPOSIDE [Concomitant]
     Active Substance: ETOPOSIDE
     Indication: Product used for unknown indication
  11. GABAPENTIN CAP 100MG [Concomitant]
     Indication: Product used for unknown indication
  12. HYDROCORT TAB 10MG [Concomitant]
     Indication: Product used for unknown indication
  13. LOSARTAN POT TAB 100MG [Concomitant]
     Indication: Product used for unknown indication
  14. METHOCARBAM TAB 500MG [Concomitant]
     Indication: Product used for unknown indication
  15. OLANZAPINE TAB 5MG [Concomitant]
     Indication: Product used for unknown indication
  16. POT CHLORIDE TAB 10MEQ ER [Concomitant]
     Indication: Product used for unknown indication

REACTIONS (5)
  - Sleep disorder [Unknown]
  - Diarrhoea [Not Recovered/Not Resolved]
  - Vision blurred [Not Recovered/Not Resolved]
  - Dizziness [Not Recovered/Not Resolved]
  - Fatigue [Not Recovered/Not Resolved]

NARRATIVE: CASE EVENT DATE: 20240615
